FAERS Safety Report 5953095-8 (Version None)
Quarter: 2008Q4

REPORT INFORMATION
  Report Type: 
  Country: None (occurrence: None)
  Receive Date: 20081114
  Receipt Date: 20080626
  Transmission Date: 20090506
  Serious: No
  Sender: FDA-Public Use
  Company Number: US-BRISTOL-MYERS SQUIBB COMPANY-14242713

PATIENT
  Age: 68 Year
  Sex: Female
  Weight: 70 kg

DRUGS (3)
  1. GLUCOPHAGE XR [Suspect]
     Dosage: INITIAL=1 TAB, THEN 2 TAB AND FINAALY 3 TABLETS LATER.
     Dates: start: 20080101, end: 20080101
  2. AMARYL [Concomitant]
     Dosage: INCREASED TO 2MG DAILY-DATE UNK
  3. PREDNISONE TAB [Concomitant]

REACTIONS (2)
  - DIARRHOEA [None]
  - SKIN IRRITATION [None]
